FAERS Safety Report 7423422-3 (Version None)
Quarter: 2011Q2

REPORT INFORMATION
  Report Type: 
  Country: None (occurrence: None)
  Receive Date: 20110419
  Receipt Date: 20110407
  Transmission Date: 20111010
  Serious: Yes (Other)
  Sender: FDA-Public Use
  Company Number: PHHY2008GB14290

PATIENT
  Sex: Male

DRUGS (9)
  1. CLOZARIL [Suspect]
     Dosage: UNK
     Dates: start: 20080708
  2. METHADONE [Concomitant]
     Indication: DRUG DEPENDENCE
     Dosage: 20 MG, UNK
     Route: 048
     Dates: start: 20080301
  3. RISPERIDONE [Concomitant]
     Indication: SCHIZOPHRENIA
     Dosage: 2 MG, UNK
     Route: 048
     Dates: start: 20080301
  4. RISPERDAL [Concomitant]
     Dosage: 50 MG, UNK
     Route: 030
     Dates: end: 20080709
  5. LORAZEPAM [Concomitant]
     Indication: AGITATION
     Dosage: 1 MG, PRN, QDS
     Route: 048
     Dates: start: 20080501
  6. CLOZARIL [Suspect]
     Indication: SCHIZOPHRENIA
     Dosage: 12.5 MG, UNK
     Route: 048
     Dates: start: 20080710, end: 20080711
  7. INTERFERON [Concomitant]
     Indication: HEPATITIS C
     Dosage: UNK DF, UNK
  8. ANTIVIRALS NOS [Concomitant]
     Indication: HEPATITIS C
     Dosage: UNK DF, UNK
  9. GRANULOCYTE COLONY STIMULATING FACTOR [Concomitant]
     Indication: NEUTROPHIL COUNT DECREASED
     Dosage: UNK DF, UNK

REACTIONS (6)
  - HEPATITIS C [None]
  - WHITE BLOOD CELL COUNT DECREASED [None]
  - MEDICATION ERROR [None]
  - NEUTROPHIL COUNT DECREASED [None]
  - SEDATION [None]
  - PLATELET COUNT ABNORMAL [None]
